FAERS Safety Report 9163767 (Version 1)
Quarter: 2012Q4

REPORT INFORMATION
  Report Type: 
  Country: US (occurrence: US)
  Receive Date: 20121203
  Receipt Date: 20121203
  Transmission Date: 20130627
  Serious: Yes (Hospitalization, Other)
  Sender: FDA-Public Use
  Company Number: US-RB-047149-12

PATIENT
  Age: 49 Year
  Sex: Female

DRUGS (6)
  1. SUBOXONE FILM [Suspect]
     Indication: DRUG DEPENDENCE
     Dosage: Suboxone film
     Route: 060
     Dates: start: 201108, end: 20121119
  2. REMERON [Concomitant]
     Indication: ANXIETY
     Dosage: Dosing details unknown
     Route: 065
  3. NEUROTIN [Concomitant]
     Indication: CONVULSION
     Dosage: Dosing details unknown
     Route: 065
  4. CELEXA [Concomitant]
     Indication: DEPRESSION
     Dosage: Dosing details unknown
     Route: 065
  5. SYNTHYROID [Concomitant]
     Indication: THYROID DISORDER
     Dosage: Dosing details unknown
     Route: 065
  6. BENADRYL [Concomitant]
     Indication: ANXIETY
     Dosage: Dosing details unknown
     Route: 065

REACTIONS (1)
  - Suicidal ideation [Recovered/Resolved]
